FAERS Safety Report 9811747 (Version 3)
Quarter: 2016Q4

REPORT INFORMATION
  Report Type: Spontaneous
  Country: US (occurrence: US)
  Receive Date: 20140110
  Receipt Date: 20161219
  Transmission Date: 20170207
  Serious: Yes (Other)
  Sender: FDA-Public Use
  Company Number: US-SANOFI-AVENTIS-2013SA066908

PATIENT
  Age: 57 Year
  Sex: Male
  Weight: 70.3 kg

DRUGS (36)
  1. LOSARTAN. [Concomitant]
     Active Substance: LOSARTAN
  2. ATORVASTATIN [Concomitant]
     Active Substance: ATORVASTATIN
  3. ENALAPRIL [Concomitant]
     Active Substance: ENALAPRIL
  4. METFORMIN [Concomitant]
     Active Substance: METFORMIN HYDROCHLORIDE
  5. FISH OIL [Concomitant]
     Active Substance: FISH OIL
  6. ARTHROTEC [Concomitant]
     Active Substance: DICLOFENAC SODIUM\MISOPROSTOL
  7. VITAMIN B-COMPLEX [Concomitant]
     Active Substance: DEXPANTHENOL\NIACINAMIDE\PYRIDOXINE HYDROCHLORIDE\RIBOFLAVIN 5^-PHOSPHATE SODIUM\THIAMINE HYDROCHLORIDE
  8. VITAMIN C [Concomitant]
     Active Substance: ASCORBIC ACID
  9. GLYBURIDE W/METFORMIN [Concomitant]
     Active Substance: GLYBURIDE\METFORMIN
     Dosage: 2.5/500 MG
  10. AVANDIA [Concomitant]
     Active Substance: ROSIGLITAZONE MALEATE
  11. GLIPIZIDE. [Concomitant]
     Active Substance: GLIPIZIDE
  12. JANUVIA [Concomitant]
     Active Substance: SITAGLIPTIN PHOSPHATE
  13. VITAMIN D [Concomitant]
     Active Substance: CHOLECALCIFEROL
  14. NAPROXEN. [Concomitant]
     Active Substance: NAPROXEN
  15. DIOVAN [Concomitant]
     Active Substance: VALSARTAN
     Route: 048
  16. ASA [Concomitant]
     Active Substance: ASPIRIN
  17. GABAPENTIN. [Concomitant]
     Active Substance: GABAPENTIN
  18. NEURONTIN [Concomitant]
     Active Substance: GABAPENTIN
  19. ASPIRIN. [Concomitant]
     Active Substance: ASPIRIN
  20. NEXIUM [Concomitant]
     Active Substance: ESOMEPRAZOLE MAGNESIUM
     Route: 048
  21. LIPITOR [Concomitant]
     Active Substance: ATORVASTATIN CALCIUM
  22. OMEGA 3 [Concomitant]
     Active Substance: OMEGA-3 FATTY ACIDS
  23. PIOGLITAZONE. [Concomitant]
     Active Substance: PIOGLITAZONE
     Route: 048
  24. PROCARDIA [Concomitant]
     Active Substance: NIFEDIPINE
  25. COZAAR [Concomitant]
     Active Substance: LOSARTAN POTASSIUM
  26. VESICARE [Concomitant]
     Active Substance: SOLIFENACIN SUCCINATE
  27. LANTUS [Concomitant]
     Active Substance: INSULIN GLARGINE
     Dosage: DOSE:10 UNIT(S)
  28. PLAVIX [Suspect]
     Active Substance: CLOPIDOGREL BISULFATE
     Indication: STENT PLACEMENT
     Route: 048
     Dates: start: 2004, end: 200907
  29. NIFEDICAL XL [Concomitant]
     Active Substance: NIFEDIPINE
  30. ENALAPRIL [Concomitant]
     Active Substance: ENALAPRIL
  31. CIALIS [Concomitant]
     Active Substance: TADALAFIL
  32. CRESTOR [Concomitant]
     Active Substance: ROSUVASTATIN CALCIUM
  33. METOPROLOL. [Concomitant]
     Active Substance: METOPROLOL
  34. ZOCOR [Concomitant]
     Active Substance: SIMVASTATIN
  35. ASPIRIN. [Concomitant]
     Active Substance: ASPIRIN
  36. GLUCOVANCE [Concomitant]
     Active Substance: GLYBURIDE\METFORMIN HYDROCHLORIDE

REACTIONS (2)
  - Injury [Unknown]
  - Cerebral haemorrhage [Not Recovered/Not Resolved]

NARRATIVE: CASE EVENT DATE: 200907
